FAERS Safety Report 9188305 (Version 1)
Quarter: 2013Q1

REPORT INFORMATION
  Report Type: Report from Study
  Country: US (occurrence: US)
  Receive Date: 20130325
  Receipt Date: 20130325
  Transmission Date: 20140127
  Serious: No
  Sender: FDA-Public Use
  Company Number: US-VERTEX PHARMACEUTICALS INC.-2013-003979

PATIENT
  Sex: Female
  Weight: 84 kg

DRUGS (5)
  1. VX-950 (TELAPREVIR) [Suspect]
     Indication: HEPATITIS C
     Dosage: 750 MG, TID
     Route: 048
  2. PEGASYS [Suspect]
     Indication: HEPATITIS C
  3. RIBAVIRIN [Suspect]
     Indication: HEPATITIS C
     Dosage: 200 MG, UNK
  4. ZOLPIDEM [Concomitant]
     Dosage: 10 MG, UNK
  5. CLONAZEPAM [Concomitant]
     Dosage: 0.5 MG, UNK

REACTIONS (8)
  - Increased upper airway secretion [Unknown]
  - Irritability [Unknown]
  - Fatigue [Unknown]
  - Diarrhoea [Unknown]
  - Vomiting [Unknown]
  - Anal pruritus [Unknown]
  - Anorectal discomfort [Unknown]
  - Nausea [Unknown]
